FAERS Safety Report 9264057 (Version 2)
Quarter: 2013Q3

REPORT INFORMATION
  Report Type: Spontaneous
  Country: US (occurrence: US)
  Receive Date: 20130430
  Receipt Date: 20130715
  Transmission Date: 20140515
  Serious: No
  Sender: FDA-Public Use
  Company Number: US-ELI_LILLY_AND_COMPANY-US201304006395

PATIENT
  Sex: Female
  Weight: 63.49 kg

DRUGS (15)
  1. ADCIRCA [Suspect]
     Indication: PULMONARY FIBROSIS
     Dosage: 10 MG, QD
     Route: 048
     Dates: start: 20130418, end: 20130421
  2. LEVOTHYROXINE [Concomitant]
     Dosage: 0.125 (NO UNIT)
  3. PANTOPRAZOLE [Concomitant]
     Dosage: 40 MG, UNK
  4. DIGOXIN [Concomitant]
     Dosage: 0.125 (NO UNIT)
  5. SIMVASTATIN [Concomitant]
     Dosage: 40 MG, UNK
  6. ASPIRIN [Concomitant]
     Dosage: 81 MG, UNK
  7. PLAVIX [Concomitant]
     Dosage: 75 MG, UNK
  8. LANTUS [Concomitant]
     Dosage: 50 IU, QD
  9. GLIPIZIDE [Concomitant]
     Dosage: 10 MG, UNK
  10. METOPROLOL [Concomitant]
     Dosage: 100 MG, UNK
  11. ISOSORBID MONONITRATE [Concomitant]
     Dosage: 60 MG, UNK
  12. LOTEMAX [Concomitant]
     Dosage: 0.5
  13. ZOLPIDEM [Concomitant]
     Dosage: 10 MG, UNK
  14. MULTIVITAMINS [Concomitant]
  15. SPIRIVA [Concomitant]

REACTIONS (7)
  - Vision blurred [Recovered/Resolved]
  - Vertigo [Recovered/Resolved]
  - Balance disorder [Recovered/Resolved]
  - Flushing [Recovered/Resolved]
  - Dizziness [Recovered/Resolved]
  - Hot flush [Recovered/Resolved]
  - Off label use [Unknown]
